FAERS Safety Report 8034017-5 (Version None)
Quarter: 2011Q4

REPORT INFORMATION
  Report Type: 
  Country: None (occurrence: None)
  Receive Date: 20111222
  Receipt Date: 20111212
  Transmission Date: 20120403
  Serious: Yes (Other)
  Sender: FDA-Public Use
  Company Number: 2011MA017703

PATIENT
  Sex: Female

DRUGS (18)
  1. KLOR-CON [Concomitant]
  2. PROPOXYPHENE NAPSYLATE AND ACETAMINOPHEN [Concomitant]
  3. TRICOR [Concomitant]
  4. VITAMIN B COMPLEX CAP [Concomitant]
  5. ZETIA [Concomitant]
  6. ASPIRIN [Concomitant]
  7. COQ-10 [Concomitant]
  8. LIPITOR [Concomitant]
  9. AMBIEN CR [Concomitant]
  10. CALCIUM CITRATE+D-1500 [Concomitant]
  11. MULTI-VITAMIN [Concomitant]
  12. FUROSEMIDE [Concomitant]
  13. DIGOXIN [Suspect]
     Indication: PRODUCT USED FOR UNKNOWN INDICATION
     Dosage: 250 MCG;QD;PO
     Route: 048
     Dates: start: 20070126, end: 20070410
  14. DIOVAN [Concomitant]
  15. DISOPYRAMIDE PHOSPHATE [Concomitant]
  16. NITROGLYCERIN [Concomitant]
  17. CRESTOR [Concomitant]
  18. NEXIUM [Concomitant]

REACTIONS (35)
  - SUPRAVENTRICULAR TACHYCARDIA [None]
  - GASTROOESOPHAGEAL REFLUX DISEASE [None]
  - MITRAL VALVE PROLAPSE [None]
  - MUSCULOSKELETAL STIFFNESS [None]
  - MUSCULOSKELETAL PAIN [None]
  - OSTEOARTHRITIS [None]
  - CARDIAC MURMUR [None]
  - BLOOD TRIGLYCERIDES INCREASED [None]
  - MYOFASCIAL PAIN SYNDROME [None]
  - MITRAL VALVE INCOMPETENCE [None]
  - MITRAL VALVE DISEASE [None]
  - AORTIC VALVE INCOMPETENCE [None]
  - BLOOD CHOLESTEROL INCREASED [None]
  - BLOOD PRESSURE FLUCTUATION [None]
  - BACK PAIN [None]
  - HYPERTENSION [None]
  - RENAL FAILURE ACUTE [None]
  - THYROID FUNCTION TEST ABNORMAL [None]
  - SUPRAVENTRICULAR EXTRASYSTOLES [None]
  - ROTATOR CUFF SYNDROME [None]
  - HYPERLIPIDAEMIA [None]
  - PAIN IN EXTREMITY [None]
  - VENTRICULAR EXTRASYSTOLES [None]
  - HYPERTRIGLYCERIDAEMIA [None]
  - TREATMENT NONCOMPLIANCE [None]
  - ASTHMA [None]
  - EXOSTOSIS [None]
  - ELECTROCARDIOGRAM POOR R-WAVE PROGRESSION [None]
  - ARTHRALGIA [None]
  - LIGAMENT SPRAIN [None]
  - ELECTROCARDIOGRAM T WAVE AMPLITUDE DECREASED [None]
  - ELECTROCARDIOGRAM CHANGE [None]
  - CHEST PAIN [None]
  - MUSCLE STRAIN [None]
  - DIASTOLIC DYSFUNCTION [None]
